FAERS Safety Report 18257546 (Version 1)
Quarter: 2020Q3

REPORT INFORMATION
  Report Type: Spontaneous
  Country: US (occurrence: US)
  Receive Date: 20200911
  Receipt Date: 20200911
  Transmission Date: 20201103
  Serious: No
  Sender: FDA-Public Use
  Company Number: None

PATIENT
  Age: 47 Year
  Sex: Female
  Weight: 72.45 kg

DRUGS (1)
  1. NATURE?THROID [Suspect]
     Active Substance: THYROID, PORCINE
     Indication: HYPOTHYROIDISM
     Dosage: ?          QUANTITY:1 TABLET(S);?
     Route: 048
     Dates: start: 20200615, end: 20200911

REACTIONS (12)
  - Somnolence [None]
  - Recalled product administered [None]
  - Dysphagia [None]
  - Asthenia [None]
  - Anxiety [None]
  - Malaise [None]
  - Palpitations [None]
  - Drug ineffective [None]
  - Product quality issue [None]
  - Alopecia [None]
  - Periorbital swelling [None]
  - Pharyngeal swelling [None]

NARRATIVE: CASE EVENT DATE: 20200715
